FAERS Safety Report 24223357 (Version 1)
Quarter: 2024Q3

REPORT INFORMATION
  Report Type: Spontaneous
  Country: ES (occurrence: ES)
  Receive Date: 20240819
  Receipt Date: 20240819
  Transmission Date: 20241017
  Serious: Yes (Hospitalization)
  Sender: BAUSCH AND LOMB
  Company Number: None

PATIENT
  Age: 54 Year
  Sex: Female

DRUGS (4)
  1. LORAZEPAM [Interacting]
     Active Substance: LORAZEPAM
     Indication: Depression
     Route: 048
     Dates: start: 20240701, end: 20240701
  2. OLANZAPINE [Interacting]
     Active Substance: OLANZAPINE
     Indication: Depression
     Route: 048
     Dates: start: 20240701, end: 20240701
  3. SIMVASTATIN [Concomitant]
     Active Substance: SIMVASTATIN
     Indication: Product used for unknown indication
     Route: 048
     Dates: start: 20221005
  4. VENLAFAXINE HYDROCHLORIDE [Concomitant]
     Active Substance: VENLAFAXINE HYDROCHLORIDE
     Indication: Depression
     Dosage: VENLABRAIN RETARD
     Route: 048
     Dates: start: 20171027

REACTIONS (3)
  - Pneumonia aspiration [Recovered/Resolved]
  - Intentional overdose [Recovered/Resolved]
  - Depressed level of consciousness [Recovered/Resolved]

NARRATIVE: CASE EVENT DATE: 20240701
